FAERS Safety Report 14733203 (Version 2)
Quarter: 2018Q2

REPORT INFORMATION
  Report Type: Spontaneous
  Country: US (occurrence: US)
  Receive Date: 20180409
  Receipt Date: 20180521
  Transmission Date: 20180711
  Serious: Yes (Other)
  Sender: FDA-Public Use
  Company Number: PHEH2018US012971

PATIENT
  Sex: Male

DRUGS (1)
  1. LATANOPROST. [Suspect]
     Active Substance: LATANOPROST
     Indication: PRODUCT USED FOR UNKNOWN INDICATION
     Dosage: QD
     Route: 047

REACTIONS (4)
  - Incorrect dose administered [Unknown]
  - Product dropper issue [Unknown]
  - Influenza like illness [Unknown]
  - Respiratory tract infection [Unknown]
